FAERS Safety Report 5078470-8 (Version None)
Quarter: 2006Q3

REPORT INFORMATION
  Report Type: 
  Country: None (occurrence: None)
  Receive Date: 20060720
  Receipt Date: 20060612
  Transmission Date: 20061208
  Serious: Yes (Other)
  Sender: FDA-Public Use
  Company Number: HQWYE227114JUN06

PATIENT
  Age: 75 Year
  Sex: Female
  Weight: 113.5 kg

DRUGS (5)
  1. ADVIL PM [Suspect]
     Indication: PAIN
     Dosage: 2 TABLET 1X PER 1 DAY, ORAL
     Route: 048
     Dates: start: 20060608, end: 20060608
  2. POTASSIUM (POTASSIUM) [Concomitant]
  3. UNKNOWN (UNKNOWN) [Concomitant]
  4. COUMADIN [Concomitant]
  5. UNSPECIFIED ANTIHYPERTENSIVE AGENT (UNSPECIFIED ANTIHYPERTENSIVE AGENT [Concomitant]

REACTIONS (1)
  - FALL [None]
